FAERS Safety Report 25231956 (Version 1)
Quarter: 2025Q2

REPORT INFORMATION
  Report Type: Spontaneous
  Country: MT (occurrence: MT)
  Receive Date: 20250423
  Receipt Date: 20250423
  Transmission Date: 20250717
  Serious: Yes (Hospitalization, Other)
  Sender: Alora Pharma
  Company Number: MT-ACELLA PHARMACEUTICALS, LLC-2025ALO02162

PATIENT
  Sex: Male

DRUGS (2)
  1. DOXYCYCLINE [Suspect]
     Active Substance: DOXYCYCLINE
     Indication: Prophylaxis against HIV infection
     Dosage: UNK, 1X/WEEK; PREP
  2. DOXYCYCLINE [Suspect]
     Active Substance: DOXYCYCLINE
     Indication: Infection prophylaxis

REACTIONS (2)
  - Neurosyphilis [Recovered/Resolved]
  - Product monitoring error [Unknown]
